FAERS Safety Report 4744322-3 (Version None)
Quarter: 2005Q3

REPORT INFORMATION
  Report Type: 
  Country: None (occurrence: None)
  Receive Date: 20050811
  Receipt Date: 20050811
  Transmission Date: 20060218
  Serious: Yes (Other)
  Sender: FDA-Public Use
  Company Number: None

PATIENT
  Age: 37 Year
  Sex: Female
  Weight: 90.7194 kg

DRUGS (1)
  1. DEPO-PROVERA [Suspect]
     Indication: CONTRACEPTION
     Dosage: 150MG/ML EVERY 3 MONTHS
     Dates: start: 20040607, end: 20050831

REACTIONS (4)
  - ALOPECIA [None]
  - BACK PAIN [None]
  - LOSS OF LIBIDO [None]
  - NIGHT SWEATS [None]
